FAERS Safety Report 11461625 (Version 1)
Quarter: 2015Q3

REPORT INFORMATION
  Report Type: Spontaneous
  Country: US (occurrence: US)
  Receive Date: 20150831
  Receipt Date: 20150831
  Transmission Date: 20151125
  Serious: No
  Sender: FDA-Public Use
  Company Number: US-ELI_LILLY_AND_COMPANY-US201008003492

PATIENT
  Age: 56 Year
  Sex: Female

DRUGS (1)
  1. CYMBALTA [Suspect]
     Active Substance: DULOXETINE HYDROCHLORIDE
     Indication: FIBROMYALGIA
     Dosage: 30 MG, DAILY (1/D)
     Dates: start: 20100811

REACTIONS (10)
  - Eructation [Unknown]
  - Anxiety [Unknown]
  - Dysphagia [Unknown]
  - Nervousness [Unknown]
  - Tremor [Unknown]
  - Disturbance in attention [Unknown]
  - Nausea [Unknown]
  - Palpitations [Unknown]
  - Feeling abnormal [Unknown]
  - Decreased interest [Unknown]

NARRATIVE: CASE EVENT DATE: 20100811
